FAERS Safety Report 11786229 (Version 3)
Quarter: 2018Q3

REPORT INFORMATION
  Report Type: Spontaneous
  Country: IT (occurrence: IT)
  Receive Date: 20151130
  Receipt Date: 20180728
  Transmission Date: 20181010
  Serious: Yes (Life-Threatening, Hospitalization)
  Sender: FDA-Public Use
  Company Number: IT-TEVA-611200ACC

PATIENT
  Age: 72 Year
  Sex: Female

DRUGS (18)
  1. TRIAZOLAM. [Suspect]
     Active Substance: TRIAZOLAM
     Indication: PRODUCT USED FOR UNKNOWN INDICATION
     Dosage: 0.25 MG, 20 GIT, AT NIGHT
     Route: 065
  2. TRITTICO ? AZIENDE CHIMICHE RIUNITE ANGELINI FRANCESCO ACRAF SPA [Suspect]
     Active Substance: TRAZODONE HYDROCHLORIDE
     Route: 065
  3. RIVOTRIL [Suspect]
     Active Substance: CLONAZEPAM
  4. OLANZAPINE. [Suspect]
     Active Substance: OLANZAPINE
     Dosage: 2.5 MILLIGRAM DAILY;
     Dates: start: 201501, end: 201503
  5. CARDIOASPIRIN ? BAYER S.P.A. [Suspect]
     Active Substance: ASPIRIN
     Indication: PRODUCT USED FOR UNKNOWN INDICATION
     Dosage: DAILY
     Route: 065
  6. TRITTICO ? AZIENDE CHIMICHE RIUNITE ANGELINI FRANCESCO ACRAF SPA [Suspect]
     Active Substance: TRAZODONE HYDROCHLORIDE
     Dates: start: 201501, end: 201507
  7. RIVOTRIL [Suspect]
     Active Substance: CLONAZEPAM
     Indication: PRODUCT USED FOR UNKNOWN INDICATION
     Dosage: 28 GTT DAILY; 1.8 MG, 28 GTT, AT NIGHT
     Route: 065
  8. LORAZEPAM. [Suspect]
     Active Substance: LORAZEPAM
  9. OLANZAPINE. [Suspect]
     Active Substance: OLANZAPINE
     Indication: PRODUCT USED FOR UNKNOWN INDICATION
     Dosage: 5.0 MILLIGRAMS, AT NIGHT
     Route: 065
     Dates: start: 201503
  10. QUETIAPINE. [Suspect]
     Active Substance: QUETIAPINE
     Indication: PRODUCT USED FOR UNKNOWN INDICATION
     Dosage: 25 MILLIGRAM DAILY;
     Route: 065
  11. BRILIQUE ? ASTRAZENECA AB [Suspect]
     Active Substance: TICAGRELOR
     Indication: PRODUCT USED FOR UNKNOWN INDICATION
     Dosage: 180 MILLIGRAM DAILY;
     Route: 048
  12. RIVOTRIL [Suspect]
     Active Substance: CLONAZEPAM
     Dosage: 15 GTT DAILY;
  13. PANTOPRAZOLE [Suspect]
     Active Substance: PANTOPRAZOLE
     Indication: PRODUCT USED FOR UNKNOWN INDICATION
     Dosage: 20 MILLIGRAM DAILY;
     Route: 065
  14. ATORVASTATIN [Suspect]
     Active Substance: ATORVASTATIN
     Indication: PRODUCT USED FOR UNKNOWN INDICATION
     Dosage: 40 MILLIGRAM DAILY;
     Route: 048
  15. TRITTICO ? AZIENDE CHIMICHE RIUNITE ANGELINI FRANCESCO ACRAF SPA [Suspect]
     Active Substance: TRAZODONE HYDROCHLORIDE
     Indication: PRODUCT USED FOR UNKNOWN INDICATION
     Dosage: 15 GTT DAILY; 60 MG/ML, 15 GTT, AT NIGHT
     Route: 065
  16. TIROSINT [Concomitant]
     Active Substance: LEVOTHYROXINE SODIUM
     Indication: HYPOTHYROIDISM
  17. LORAZEPAM. [Suspect]
     Active Substance: LORAZEPAM
     Indication: PRODUCT USED FOR UNKNOWN INDICATION
     Dosage: 68 GTT DAILY; 1 MG, 20 GTT, AT NIGHT
     Route: 065
  18. LOPRESOR ? DAIICHI SANKYO ITALIA S.P.A. [Suspect]
     Active Substance: METOPROLOL TARTRATE
     Indication: PRODUCT USED FOR UNKNOWN INDICATION
     Dosage: 25 MILLIGRAM DAILY;
     Route: 048

REACTIONS (13)
  - Electrocardiogram QT prolonged [Unknown]
  - Dyspnoea [Unknown]
  - Fatigue [Unknown]
  - Discomfort [Unknown]
  - Epistaxis [Unknown]
  - Malaise [Unknown]
  - Electrocardiogram T wave inversion [Unknown]
  - Feeling cold [Unknown]
  - Weight increased [Unknown]
  - Myocardial ischaemia [Unknown]
  - Hypothyroidism [Unknown]
  - Suicide attempt [Unknown]
  - Blood pressure decreased [Unknown]

NARRATIVE: CASE EVENT DATE: 201507
